FAERS Safety Report 7480724-2 (Version None)
Quarter: 2011Q2

REPORT INFORMATION
  Report Type: 
  Country: None (occurrence: None)
  Receive Date: 20110516
  Receipt Date: 20110408
  Transmission Date: 20111010
  Serious: Yes (Hospitalization, Other)
  Sender: FDA-Public Use
  Company Number: US-BAYER-201042018NA

PATIENT
  Age: 36 Year
  Sex: Female
  Weight: 86.168 kg

DRUGS (10)
  1. YASMIN [Suspect]
     Indication: CONTRACEPTION
     Dosage: UNK UNK, UNK
     Route: 048
     Dates: start: 20051101
  2. PROMETHAZINE [Concomitant]
     Indication: NAUSEA
     Dosage: UNK
     Dates: start: 20050501, end: 20080601
  3. PRILOSEC [Concomitant]
  4. YASMIN [Suspect]
     Dosage: UNK
  5. PROMETHEGAN [Concomitant]
  6. CARAFATE [Concomitant]
  7. FLUOXETINE [Concomitant]
  8. HYDROCODONE [HYDROCODONE] [Concomitant]
  9. HYOSCYAMINE [Concomitant]
  10. ALPRAZOLAM [Concomitant]
     Indication: ANXIETY
     Dosage: UNK
     Dates: start: 20040101, end: 20080101

REACTIONS (6)
  - ABDOMINAL PAIN UPPER [None]
  - GALLBLADDER DISORDER [None]
  - DYSPEPSIA [None]
  - ABDOMINAL PAIN [None]
  - BILIARY COLIC [None]
  - CHOLECYSTITIS CHRONIC [None]
